FAERS Safety Report 9503929 (Version 2)
Quarter: 2013Q3

REPORT INFORMATION
  Report Type: Report from Study
  Country: KR (occurrence: KR)
  Receive Date: 20130906
  Receipt Date: 20130918
  Transmission Date: 20140515
  Serious: Yes (Hospitalization)
  Sender: FDA-Public Use
  Company Number: KR-BAYER-2013-106717

PATIENT
  Age: 71 Year
  Sex: Male
  Weight: 65 kg

DRUGS (14)
  1. NEXAVAR [Suspect]
     Indication: HEPATOCELLULAR CARCINOMA
     Dosage: DAILY DOSE 400 MG
     Route: 048
     Dates: start: 20130813, end: 20130903
  2. CODIOVAN [Concomitant]
     Dosage: 160/12.5 MG
     Route: 048
     Dates: start: 20070420
  3. NOVOMIX [INSULIN ASPART,INSULIN ASPART PROTAMINE] [Concomitant]
     Dosage: 100 IU/ML
     Route: 058
     Dates: start: 20050618
  4. MECOBALAMIN [Concomitant]
     Dosage: 500 MCG
     Route: 048
     Dates: start: 20120227
  5. MUCOSTA [Concomitant]
     Dosage: DAILY DOSE 300 MG
     Route: 048
     Dates: start: 20040715
  6. GODEX [Concomitant]
     Dosage: 3 CAPSULE
     Route: 048
     Dates: start: 20130709, end: 20130911
  7. PLETAAL [Concomitant]
     Dosage: DAILY DOSE 200 MG
     Route: 048
     Dates: start: 20040515
  8. OTILONIUM BROMIDE [Concomitant]
     Dosage: DAILY DOSE 120 MG
     Route: 048
     Dates: start: 20130726, end: 20130911
  9. PARACETAMOL [Concomitant]
     Dosage: 3 TABS
     Route: 048
     Dates: start: 20130806, end: 20130911
  10. PARACETAMOL [Concomitant]
     Dosage: 1 DF, PRN
     Dates: start: 20130914
  11. RANITIDINE [Concomitant]
     Dosage: 300 MG, UNK
     Route: 048
     Dates: start: 20130806
  12. MEGACE [Concomitant]
     Dosage: 1 PACK
     Route: 048
     Dates: start: 20130806
  13. TYLENOL [PARACETAMOL] [Concomitant]
     Dosage: UNK UNK, 3 (PRN)
     Route: 048
     Dates: start: 20130820
  14. LEVOTHYROXINE [Concomitant]
     Dosage: 50 ?G, UNK
     Dates: start: 20130906

REACTIONS (1)
  - General physical health deterioration [Recovered/Resolved]
